FAERS Safety Report 4405094-5 (Version None)
Quarter: 2004Q3

REPORT INFORMATION
  Report Type: 
  Country: None (occurrence: None)
  Receive Date: 20040716
  Receipt Date: 20040707
  Transmission Date: 20050211
  Serious: Yes (Death)
  Sender: FDA-Public Use
  Company Number: 2004UW11265

PATIENT
  Age: 59 Year
  Sex: Female
  Weight: 151.5014 kg

DRUGS (9)
  1. DIPRIVAN [Suspect]
     Indication: EYE OPERATION
     Dates: start: 20040519
  2. DIPRIVAN [Suspect]
     Indication: SEDATIVE THERAPY
     Dates: start: 20040519
  3. HYDROCHLOROTHIAZIDE [Concomitant]
  4. RINGER'S SOLUTION [Concomitant]
  5. PHENYLEPHRINE [Concomitant]
  6. MIDRIACYL [Concomitant]
  7. EPINEPHRINE [Concomitant]
  8. GARAMYCIN [Concomitant]
  9. VANCOMYCIN [Concomitant]

REACTIONS (6)
  - ABDOMINAL PAIN [None]
  - HEPATIC FAILURE [None]
  - MULTI-ORGAN FAILURE [None]
  - NAUSEA [None]
  - RENAL FAILURE [None]
  - VOMITING [None]
